FAERS Safety Report 10910866 (Version 1)
Quarter: 2015Q1

REPORT INFORMATION
  Report Type: Spontaneous
  Country: US (occurrence: US)
  Receive Date: 20150312
  Receipt Date: 20150312
  Transmission Date: 20150721
  Serious: No
  Sender: FDA-Public Use
  Company Number: US-ASTRAZENECA-2014SE64841

PATIENT
  Age: 72 Year
  Sex: Female
  Weight: 99.8 kg

DRUGS (7)
  1. BYDUREON [Suspect]
     Active Substance: EXENATIDE
     Indication: TYPE 2 DIABETES MELLITUS
     Dosage: 2 UG, 2 MG 4 COUNT, ONCE A WEEK
     Route: 058
     Dates: start: 2014
  2. LANTUS [Concomitant]
     Active Substance: INSULIN GLARGINE
  3. JANUVIA [Concomitant]
     Active Substance: SITAGLIPTIN PHOSPHATE
  4. HUMALOG [Concomitant]
     Active Substance: INSULIN LISPRO
  5. KENALOG [Concomitant]
     Active Substance: TRIAMCINOLONE ACETONIDE
     Indication: PSORIASIS
  6. KENALOG [Concomitant]
     Active Substance: TRIAMCINOLONE ACETONIDE
     Indication: BACK PAIN
  7. BABY ASPIRIN [Concomitant]
     Active Substance: ASPIRIN

REACTIONS (13)
  - Skin discolouration [Recovering/Resolving]
  - Injection site swelling [Not Recovered/Not Resolved]
  - Injection site bruising [Unknown]
  - Product quality issue [Unknown]
  - Underdose [Unknown]
  - Injection site haemorrhage [Recovered/Resolved]
  - Injection site mass [Unknown]
  - Insomnia [Unknown]
  - Joint swelling [Recovering/Resolving]
  - Mass [Unknown]
  - Nausea [Recovered/Resolved]
  - Treatment noncompliance [Unknown]
  - Sciatica [Not Recovered/Not Resolved]

NARRATIVE: CASE EVENT DATE: 2014
